FAERS Safety Report 7163362-0 (Version None)
Quarter: 2010Q4

REPORT INFORMATION
  Report Type: 
  Country: None (occurrence: None)
  Receive Date: 20101202
  Receipt Date: 20101115
  Transmission Date: 20110411
  Serious: No
  Sender: FDA-Public Use
  Company Number: 2010-01002

PATIENT
  Sex: Female

DRUGS (2)
  1. ZICAM COLD REMEDY NASAL GEL [Suspect]
     Indication: NASAL CONGESTION
     Dosage: AS DIRECTED, APPROXIMATELY JAN 2009
     Dates: start: 20090101
  2. ZICAM COLD REMEDY NASAL GEL [Suspect]
     Indication: NASOPHARYNGITIS
     Dosage: AS DIRECTED, APPROXIMATELY JAN 2009
     Dates: start: 20090101

REACTIONS (2)
  - AGEUSIA [None]
  - ANOSMIA [None]
